FAERS Safety Report 16659597 (Version 11)
Quarter: 2021Q2

REPORT INFORMATION
  Report Type: Report from Study
  Country: None (occurrence: FR)
  Receive Date: 20190802
  Receipt Date: 20210406
  Transmission Date: 20210716
  Serious: Yes (Hospitalization, Other)
  Sender: FDA-Public Use
  Company Number: FR-ABBVIE-18K-056-2575417-00

PATIENT
  Age: 61 Year
  Sex: Male
  Weight: 75 kg

DRUGS (35)
  1. VENCLYXTO [Suspect]
     Active Substance: VENETOCLAX
     Route: 048
     Dates: start: 20190402, end: 20190408
  2. VENTOLINE [Concomitant]
     Active Substance: ALBUTEROL
     Indication: PHARYNGITIS
  3. PANTOPRAZOLE [Concomitant]
     Active Substance: PANTOPRAZOLE
     Indication: PROPHYLAXIS
     Dates: start: 20181208
  4. ZOPHREN [Concomitant]
     Active Substance: ONDANSETRON
     Dates: start: 20190118, end: 20190122
  5. ZOPHREN [Concomitant]
     Active Substance: ONDANSETRON
     Dates: start: 20181208, end: 20181212
  6. VENCLYXTO [Suspect]
     Active Substance: VENETOCLAX
     Route: 048
     Dates: start: 20181015, end: 20181021
  7. PENTACARINAT [Concomitant]
     Active Substance: PENTAMIDINE ISETHIONATE
     Indication: PHARYNGITIS
  8. PERFALGAN [Concomitant]
     Active Substance: ACETAMINOPHEN
     Indication: HEADACHE
     Dates: start: 20181130, end: 20181201
  9. ZOPHREN [Concomitant]
     Active Substance: ONDANSETRON
     Indication: PROPHYLAXIS OF NAUSEA AND VOMITING
     Dates: start: 20181228, end: 20181231
  10. VENCLYXTO [Suspect]
     Active Substance: VENETOCLAX
     Route: 048
     Dates: start: 20181008, end: 20181014
  11. NIVESTIM [Concomitant]
     Active Substance: FILGRASTIM
     Indication: PROPHYLAXIS
     Dates: start: 20181213, end: 20181220
  12. VENCLYXTO [Suspect]
     Active Substance: VENETOCLAX
     Route: 048
     Dates: start: 20201013
  13. VENTOLINE [Concomitant]
     Active Substance: ALBUTEROL
     Indication: EAR INFECTION
  14. VENTOLINE [Concomitant]
     Active Substance: ALBUTEROL
     Indication: RHINITIS
  15. PENTACARINAT [Concomitant]
     Active Substance: PENTAMIDINE ISETHIONATE
     Indication: BRONCHITIS
     Dates: start: 2018
  16. BACTRIM [Concomitant]
     Active Substance: SULFAMETHOXAZOLE\TRIMETHOPRIM
     Indication: INFECTION PROPHYLAXIS
     Dates: start: 20181208
  17. NIVESTIM [Concomitant]
     Active Substance: FILGRASTIM
     Dates: start: 20190125, end: 20190130
  18. IMBRUVICA [Suspect]
     Active Substance: IBRUTINIB
     Indication: CHRONIC LYMPHOCYTIC LEUKAEMIA
     Route: 048
     Dates: start: 20170207, end: 20181021
  19. VENCLYXTO [Suspect]
     Active Substance: VENETOCLAX
     Indication: CHRONIC LYMPHOCYTIC LEUKAEMIA
     Route: 048
     Dates: start: 20180924, end: 20180930
  20. VENCLYXTO [Suspect]
     Active Substance: VENETOCLAX
     Route: 048
     Dates: start: 20190429, end: 20200608
  21. VENCLYXTO [Suspect]
     Active Substance: VENETOCLAX
     Route: 048
     Dates: start: 20200609, end: 20201012
  22. VENTOLINE [Concomitant]
     Active Substance: ALBUTEROL
     Indication: BRONCHITIS
     Dates: start: 2018
  23. HIZENTRA [Concomitant]
     Active Substance: HUMAN IMMUNOGLOBULIN G
     Indication: CHRONIC LYMPHOCYTIC LEUKAEMIA
     Dates: start: 20180924
  24. ZYLORIC [Concomitant]
     Active Substance: ALLOPURINOL
     Indication: PROPHYLAXIS
     Dates: start: 20190327, end: 20190807
  25. PENTACARINAT [Concomitant]
     Active Substance: PENTAMIDINE ISETHIONATE
     Indication: EAR INFECTION
  26. PENTACARINAT [Concomitant]
     Active Substance: PENTAMIDINE ISETHIONATE
     Indication: RHINITIS
  27. ZELITREX [Concomitant]
     Active Substance: VALACYCLOVIR HYDROCHLORIDE
     Indication: INFECTION PROPHYLAXIS
     Dates: start: 20181130
  28. FOLINIC ACID [Concomitant]
     Active Substance: LEUCOVORIN
     Indication: INFECTION PROPHYLAXIS
     Dates: start: 20181208
  29. VENCLYXTO [Suspect]
     Active Substance: VENETOCLAX
     Route: 048
     Dates: start: 20181022, end: 20181120
  30. VENCLYXTO [Suspect]
     Active Substance: VENETOCLAX
     Route: 048
     Dates: start: 20190409, end: 20190415
  31. VENCLYXTO [Suspect]
     Active Substance: VENETOCLAX
     Route: 048
     Dates: start: 20190416, end: 20190428
  32. VENCLYXTO [Suspect]
     Active Substance: VENETOCLAX
     Route: 048
     Dates: start: 20181001, end: 20181007
  33. VENCLYXTO [Suspect]
     Active Substance: VENETOCLAX
     Route: 048
     Dates: start: 20190327, end: 20190401
  34. OXYNORM [Concomitant]
     Active Substance: OXYCODONE HYDROCHLORIDE
     Indication: HEADACHE
     Dates: start: 20181130, end: 20181201
  35. NIVESTIM [Concomitant]
     Active Substance: FILGRASTIM
     Dates: start: 20190102, end: 20190107

REACTIONS (32)
  - Hyperphosphataemia [Recovered/Resolved]
  - Epistaxis [Recovered/Resolved]
  - Dyspnoea [Recovered/Resolved]
  - Hyperuricaemia [Recovered/Resolved]
  - Leukopenia [Recovered/Resolved]
  - Chronic lymphocytic leukaemia [Not Recovered/Not Resolved]
  - Hyperkalaemia [Recovered/Resolved]
  - Hyperphosphataemia [Recovered/Resolved]
  - Hyperuricaemia [Recovered/Resolved]
  - Lymphopenia [Recovered/Resolved]
  - Skin lesion [Unknown]
  - Benign prostatic hyperplasia [Not Recovered/Not Resolved]
  - Lung disorder [Recovered/Resolved]
  - Hypocalcaemia [Recovered/Resolved]
  - Epistaxis [Recovered/Resolved]
  - Paranasal cyst [Recovered/Resolved]
  - Nephrolithiasis [Recovered/Resolved]
  - Richter^s syndrome [Not Recovered/Not Resolved]
  - Asthenia [Recovered/Resolved]
  - Actinic keratosis [Not Recovered/Not Resolved]
  - Neutropenia [Recovered/Resolved]
  - Renal colic [Recovered/Resolved]
  - Neutropenia [Recovered/Resolved]
  - Productive cough [Recovered/Resolved]
  - Off label use [Unknown]
  - Nephrolithiasis [Not Recovered/Not Resolved]
  - Thrombocytopenia [Recovered/Resolved]
  - Bowen^s disease [Recovered/Resolved]
  - Hypocalcaemia [Recovered/Resolved]
  - Hypocalcaemia [Recovered/Resolved]
  - Anaemia [Recovered/Resolved]
  - Diarrhoea [Not Recovered/Not Resolved]

NARRATIVE: CASE EVENT DATE: 20180924
